FAERS Safety Report 14301396 (Version 1)
Quarter: 2017Q4

REPORT INFORMATION
  Report Type: Spontaneous
  Country: US (occurrence: US)
  Receive Date: 20171218
  Receipt Date: 20171218
  Transmission Date: 20180321
  Serious: Yes (Hospitalization)
  Sender: FDA-Public Use
  Company Number: None

PATIENT
  Age: 44 Year
  Sex: Male
  Weight: 63.4 kg

DRUGS (21)
  1. HYOSCYAMINE SULFATE. [Concomitant]
     Active Substance: HYOSCYAMINE SULFATE
  2. CODEINE-GUAIFENESIN [Concomitant]
     Active Substance: CODEINE PHOSPHATE\GUAIFENESIN
  3. IBUPROFEN. [Concomitant]
     Active Substance: IBUPROFEN
  4. FENTANYL. [Concomitant]
     Active Substance: FENTANYL
  5. HYDROXINE [Concomitant]
     Active Substance: HYDROXYZINE HYDROCHLORIDE
  6. LORAZEPAM. [Concomitant]
     Active Substance: LORAZEPAM
  7. LOPERAMIDE [Concomitant]
     Active Substance: LOPERAMIDE
  8. AMLODIPINE [Concomitant]
     Active Substance: AMLODIPINE BESYLATE
  9. FLONASE [Concomitant]
     Active Substance: FLUTICASONE PROPIONATE
  10. SENNA [Concomitant]
     Active Substance: SENNA LEAF\SENNOSIDES\SENNOSIDES A AND B
  11. OLANZAPINE. [Concomitant]
     Active Substance: OLANZAPINE
  12. REGORAFENIB [Suspect]
     Active Substance: REGORAFENIB
     Indication: GALLBLADDER ADENOCARCINOMA
     Route: 048
     Dates: start: 20171012, end: 20171128
  13. OXYCODONE [Concomitant]
     Active Substance: OXYCODONE
  14. ONDANSETRON [Concomitant]
     Active Substance: ONDANSETRON
  15. DIPHENHYDRAMINE HCL [Concomitant]
     Active Substance: DIPHENHYDRAMINE HYDROCHLORIDE
  16. OMEPRAZOLE. [Concomitant]
     Active Substance: OMEPRAZOLE
  17. LORATADINE. [Concomitant]
     Active Substance: LORATADINE
  18. FUROSEMIDE. [Concomitant]
     Active Substance: FUROSEMIDE
  19. SPIRONOLACTONE. [Concomitant]
     Active Substance: SPIRONOLACTONE
  20. BACLOFEN. [Concomitant]
     Active Substance: BACLOFEN
  21. HYDROMORPHONE [Concomitant]
     Active Substance: HYDROMORPHONE

REACTIONS (18)
  - Back pain [None]
  - Pollakiuria [None]
  - Discomfort [None]
  - Water intoxication [None]
  - Tachycardia [None]
  - Urinary retention [None]
  - Hyperkalaemia [None]
  - Hydronephrosis [None]
  - Hypophagia [None]
  - Ascites [None]
  - Nausea [None]
  - Disease progression [None]
  - Anuria [None]
  - Hyponatraemia [None]
  - Dry mouth [None]
  - Hypovolaemia [None]
  - Acute kidney injury [None]
  - Haemodialysis [None]

NARRATIVE: CASE EVENT DATE: 20171217
